FAERS Safety Report 9045236 (Version 1)
Quarter: 2013Q1

REPORT INFORMATION
  Report Type: Spontaneous
  Country: BR (occurrence: BR)
  Receive Date: 20130131
  Receipt Date: 20130131
  Transmission Date: 20140127
  Serious: Yes (Other)
  Sender: FDA-Public Use
  Company Number: PHHY2013BR007843

PATIENT
  Sex: Male

DRUGS (1)
  1. DIOVAN [Suspect]
     Indication: BLOOD PRESSURE
     Dosage: 1 DF (160/5MG), DAILY
     Dates: start: 2009, end: 2012

REACTIONS (3)
  - Oropharyngeal discomfort [Recovering/Resolving]
  - Cardiac disorder [Recovering/Resolving]
  - Blood pressure increased [Recovering/Resolving]
